FAERS Safety Report 6888906-5 (Version None)
Quarter: 2010Q3

REPORT INFORMATION
  Report Type: 
  Country: None (occurrence: None)
  Receive Date: 20100730
  Receipt Date: 20071121
  Transmission Date: 20110219
  Serious: No
  Sender: FDA-Public Use
  Company Number: US-PFIZER INC-2007098216

PATIENT
  Sex: Male
  Weight: 72.7 kg

DRUGS (7)
  1. LIPITOR [Suspect]
     Indication: BLOOD CHOLESTEROL
     Dates: start: 20071121
  2. LISINOPRIL [Concomitant]
  3. AMLODIPINE [Concomitant]
  4. PRIMIDONE [Concomitant]
  5. ACTOS [Concomitant]
  6. METFORMIN HCL [Concomitant]
  7. MIRAPEX [Concomitant]

REACTIONS (1)
  - DIZZINESS [None]
